FAERS Safety Report 6469033-8 (Version None)
Quarter: 2009Q4

REPORT INFORMATION
  Report Type: 
  Country: None (occurrence: None)
  Receive Date: 20091203
  Receipt Date: 20091124
  Transmission Date: 20100525
  Serious: Yes (Hospitalization)
  Sender: FDA-Public Use
  Company Number: PHHY2009MX51804

PATIENT
  Age: 77 Year
  Sex: Female

DRUGS (2)
  1. EXELON [Suspect]
     Dosage: 5 SQ CM PER DAY
     Route: 062
     Dates: end: 20090929
  2. EXELON [Suspect]
     Dosage: 10 SQ CM PER DAY
     Route: 062
     Dates: start: 20091101

REACTIONS (4)
  - BLOOD POTASSIUM DECREASED [None]
  - BLOOD PRESSURE DECREASED [None]
  - BLOOD SODIUM DECREASED [None]
  - SYNCOPE [None]
